FAERS Safety Report 12688556 (Version 1)
Quarter: 2016Q3

REPORT INFORMATION
  Report Type: Spontaneous
  Country: US (occurrence: US)
  Receive Date: 20160826
  Receipt Date: 20160826
  Transmission Date: 20161109
  Serious: Yes (Hospitalization, Other)
  Sender: FDA-Public Use
  Company Number: US-ASTRAZENECA-2016SE90314

PATIENT
  Age: 50 Year
  Sex: Female

DRUGS (12)
  1. ASPIRIN. [Concomitant]
     Active Substance: ASPIRIN
     Dosage: 81.0MG UNKNOWN
  2. LANTUS [Concomitant]
     Active Substance: INSULIN GLARGINE
  3. ZOFRAN ODT [Concomitant]
     Active Substance: ONDANSETRON HYDROCHLORIDE
     Dosage: 4.0MG UNKNOWN
  4. FARXIGA [Suspect]
     Active Substance: DAPAGLIFLOZIN PROPANEDIOL
     Indication: TYPE 2 DIABETES MELLITUS
     Route: 048
     Dates: start: 2015
  5. LOVAZA [Concomitant]
     Active Substance: OMEGA-3-ACID ETHYL ESTERS
  6. METFORMIN HCL [Concomitant]
     Active Substance: METFORMIN HYDROCHLORIDE
     Dates: start: 20160202
  7. SYMBICORT [Suspect]
     Active Substance: BUDESONIDE\FORMOTEROL FUMARATE DIHYDRATE
     Dosage: 160/4.5 MICROGRAM
     Route: 055
  8. ALBUTEROL SULFATE. [Concomitant]
     Active Substance: ALBUTEROL SULFATE
     Dates: start: 20151029
  9. TANZIUM [Concomitant]
     Dosage: 50.0MG UNKNOWN
     Route: 058
     Dates: start: 20160722
  10. NOVOLOG [Concomitant]
     Active Substance: INSULIN ASPART
     Dates: start: 20160202
  11. KEPPRA [Concomitant]
     Active Substance: LEVETIRACETAM
     Dosage: 250.0MG UNKNOWN
     Dates: start: 20160122
  12. LOSARTAN. [Concomitant]
     Active Substance: LOSARTAN
     Dosage: 100.0MG UNKNOWN
     Dates: start: 20141016

REACTIONS (2)
  - Gastroenteritis viral [Unknown]
  - Acute kidney injury [Recovering/Resolving]
